FAERS Safety Report 7311231-5 (Version None)
Quarter: 2011Q1

REPORT INFORMATION
  Report Type: 
  Country: None (occurrence: None)
  Receive Date: 20110210
  Receipt Date: 20110204
  Transmission Date: 20110831
  Serious: Yes (Other)
  Sender: FDA-Public Use
  Company Number: TRP_07365_2010

PATIENT
  Sex: Male
  Weight: 73.4827 kg

DRUGS (6)
  1. INFERGEN [Suspect]
     Indication: HEPATITIS C
     Dosage: (9 ?G 3X/WEEK SUBCUTANEOUS)
     Route: 058
     Dates: start: 20101025
  2. LISINOPRIL [Concomitant]
  3. LANTUS [Concomitant]
  4. PRAVASTATIN [Concomitant]
  5. RIBAPAR (NOT SPECIFIED) [Suspect]
     Indication: HEPATITIS C
     Dosage: (1000 MG, DAILY [400/600] ORAL)
     Route: 048
     Dates: start: 20101025
  6. METFORMIN [Concomitant]

REACTIONS (7)
  - PAIN IN EXTREMITY [None]
  - INCORRECT DOSE ADMINISTERED [None]
  - INJECTION SITE HAEMATOMA [None]
  - INJECTION SITE PRURITUS [None]
  - WRONG TECHNIQUE IN DRUG USAGE PROCESS [None]
  - FEELING ABNORMAL [None]
  - INJECTION SITE SWELLING [None]
